FAERS Safety Report 8806653 (Version 1)
Quarter: 2012Q4

REPORT INFORMATION
  Report Type: Spontaneous
  Country: US (occurrence: None)
  Receive Date: 20120920
  Receipt Date: 20120920
  Transmission Date: 20130627
  Serious: No
  Sender: FDA-Public Use
  Company Number: None

PATIENT
  Age: 72 Year
  Sex: Male

DRUGS (10)
  1. REVLIMID [Suspect]
     Dosage: Revlimid 10 mg daily orally
     Route: 048
     Dates: start: 201108, end: 201207
  2. OXYCODONE [Concomitant]
  3. FLUOXETINE [Concomitant]
  4. ATENOLOL [Concomitant]
  5. CLONAZEPAM [Concomitant]
  6. FAMOTIDINE [Concomitant]
  7. ATORVASTATIN [Concomitant]
  8. FINASTERIDE [Concomitant]
  9. WARFARIN [Concomitant]
  10. ZOLPIDEM [Concomitant]

REACTIONS (4)
  - Pancytopenia [None]
  - Neutropenia [None]
  - Amnesia [None]
  - Neuropathy peripheral [None]
